FAERS Safety Report 19163684 (Version 1)
Quarter: 2021Q2

REPORT INFORMATION
  Report Type: Spontaneous
  Country: TW (occurrence: TW)
  Receive Date: 20210421
  Receipt Date: 20210421
  Transmission Date: 20210717
  Serious: Yes (Death, Other)
  Sender: FDA-Public Use
  Company Number: TW-ASTRAZENECA-2021A306226

PATIENT
  Age: 44 Year
  Sex: Male

DRUGS (4)
  1. GEFITINIB. [Suspect]
     Active Substance: GEFITINIB
     Indication: LUNG CARCINOMA CELL TYPE UNSPECIFIED STAGE IV
     Route: 048
     Dates: start: 201505, end: 201603
  2. CISPLATIN. [Concomitant]
     Active Substance: CISPLATIN
     Indication: CHEMOTHERAPY
     Dosage: 6 CYCLES
     Dates: start: 201604, end: 201608
  3. PEMETREXED. [Concomitant]
     Active Substance: PEMETREXED
     Indication: CHEMOTHERAPY
     Dosage: 6 CYCLES
     Dates: start: 201604, end: 201608
  4. OSIMERTINIB. [Suspect]
     Active Substance: OSIMERTINIB
     Route: 048
     Dates: start: 201708, end: 202003

REACTIONS (7)
  - EGFR gene mutation [Unknown]
  - Malignant neoplasm progression [Unknown]
  - Sarcomatoid carcinoma of the lung [Unknown]
  - Acquired gene mutation [Unknown]
  - Drug resistance [Unknown]
  - Metastatic squamous cell carcinoma [Unknown]
  - Malignant transformation [Unknown]

NARRATIVE: CASE EVENT DATE: 201603
